FAERS Safety Report 5557820-X (Version None)
Quarter: 2007Q4

REPORT INFORMATION
  Report Type: 
  Country: None (occurrence: None)
  Receive Date: 20071214
  Receipt Date: 20071210
  Transmission Date: 20080405
  Serious: Yes (Hospitalization, Disabling, Other)
  Sender: FDA-Public Use
  Company Number: US-MERCK-0705USA02783

PATIENT
  Age: 61 Year
  Sex: Female

DRUGS (5)
  1. FOSAMAX [Suspect]
     Indication: BONE DENSITY DECREASED
     Route: 048
     Dates: start: 19980323
  2. FOSAMAX [Suspect]
     Route: 048
     Dates: end: 20070101
  3. ESTROGENS (UNSPECIFIED) [Concomitant]
     Route: 065
     Dates: start: 19840101
  4. [THERAPY UNSPECIFIED] [Concomitant]
     Route: 065
     Dates: start: 19900101
  5. FOSAMAX PLUS D [Suspect]
     Route: 048

REACTIONS (20)
  - ABDOMINAL PAIN UPPER [None]
  - ANXIETY [None]
  - ARTHROPATHY [None]
  - ASTHMA [None]
  - CONTUSION [None]
  - FALL [None]
  - FATIGUE [None]
  - FEAR [None]
  - HYPERGLYCAEMIA [None]
  - HYPERLIPIDAEMIA [None]
  - HYPOTHYROIDISM [None]
  - JOINT SPRAIN [None]
  - LIMB INJURY [None]
  - MUSCLE STRAIN [None]
  - OSTEOARTHRITIS [None]
  - OSTEONECROSIS [None]
  - RIB FRACTURE [None]
  - SWOLLEN TONGUE [None]
  - TONGUE ULCERATION [None]
  - WEIGHT INCREASED [None]
